FAERS Safety Report 5027327-7 (Version None)
Quarter: 2006Q2

REPORT INFORMATION
  Report Type: 
  Country: None (occurrence: None)
  Receive Date: 20060612
  Receipt Date: 20060605
  Transmission Date: 20061013
  Serious: Yes (Other)
  Sender: FDA-Public Use
  Company Number: S06-USA-02149-01

PATIENT
  Age: 63 Year
  Sex: Male

DRUGS (3)
  1. LEXAPRO [Suspect]
     Dosage: 10 MG QD PO
     Route: 048
  2. LEXAPRO [Suspect]
     Dosage: 5 MG QD PO
     Route: 048
  3. REBIF [Concomitant]

REACTIONS (3)
  - EJACULATION FAILURE [None]
  - PROGRESSIVE MULTIPLE SCLEROSIS [None]
  - SEXUAL DYSFUNCTION [None]
